FAERS Safety Report 25415963 (Version 1)
Quarter: 2025Q2

REPORT INFORMATION
  Report Type: Spontaneous
  Country: CA (occurrence: CA)
  Receive Date: 20250610
  Receipt Date: 20250610
  Transmission Date: 20250717
  Serious: Yes (Other)
  Sender: CHEPLAPHARM
  Company Number: None

PATIENT
  Age: 41 Year
  Sex: Female

DRUGS (8)
  1. QUETIAPINE [Suspect]
     Active Substance: QUETIAPINE
     Indication: Social anxiety disorder
     Dosage: AT BEDTIME?DAILY DOSE: 300 MILLIGRAM
     Route: 048
  2. QUETIAPINE [Suspect]
     Active Substance: QUETIAPINE
     Indication: Major depression
     Dosage: AT BEDTIME?DAILY DOSE: 300 MILLIGRAM
     Route: 048
  3. QUETIAPINE [Suspect]
     Active Substance: QUETIAPINE
     Indication: Antipsychotic therapy
     Dosage: AT BEDTIME?DAILY DOSE: 300 MILLIGRAM
     Route: 048
  4. BACLOFEN [Concomitant]
     Active Substance: BACLOFEN
     Indication: Product used for unknown indication
     Dosage: DAILY DOSE: 55 MILLIGRAM
  5. KETAMINE [Concomitant]
     Active Substance: KETAMINE
     Indication: Product used for unknown indication
     Dosage: 250 MG, INHALED EVERY 3 DAYS
     Route: 055
  6. LORAZEPAM [Concomitant]
     Active Substance: LORAZEPAM
     Indication: Product used for unknown indication
     Dosage: AT BEDTIME?DAILY DOSE: 2 MILLIGRAM
  7. SUMATRIPTAN [Concomitant]
     Active Substance: SUMATRIPTAN
     Indication: Product used for unknown indication
     Dosage: 100 MG/D AS NEEDED?DAILY DOSE: 100 MILLIGRAM
  8. ZOPICLONE [Concomitant]
     Active Substance: ZOPICLONE
     Indication: Product used for unknown indication
     Dosage: AT BEDTIME?DAILY DOSE: 22.5 MILLIGRAM

REACTIONS (2)
  - Metabolic disorder [Recovered/Resolved]
  - Obesity [Recovered/Resolved]
